FAERS Safety Report 17909633 (Version 1)
Quarter: 2020Q2

REPORT INFORMATION
  Report Type: Spontaneous
  Country: DE (occurrence: DE)
  Receive Date: 20200617
  Receipt Date: 20200617
  Transmission Date: 20200714
  Serious: Yes (Hospitalization)
  Sender: FDA-Public Use
  Company Number: DE-NAPPMUNDI-GBR-2020-0077163

PATIENT
  Age: 67 Year
  Sex: Male

DRUGS (8)
  1. OXYCODONE HYDROCHLORIDE. [Suspect]
     Active Substance: OXYCODONE HYDROCHLORIDE
     Indication: PRODUCT USED FOR UNKNOWN INDICATION
     Dosage: 10 MG, QID (10 MG, 1-1-1-1) (MADICATION ERROR/ MEDIKATIONSFEHLER)
     Route: 065
  2. ETORICOXIB. [Concomitant]
     Active Substance: ETORICOXIB
     Dosage: 90 MG, DAILY (90 MG, 1-0-0-0)
  3. PREDNISOLON                        /00016201/ [Concomitant]
     Active Substance: PREDNISOLONE
     Dosage: 5 MG, BID (5 MG, 1-0-1-0)
  4. DOCETAXEL. [Suspect]
     Active Substance: DOCETAXEL
     Indication: PRODUCT USED FOR UNKNOWN INDICATION
     Dosage: UNK (NK MG, LETZTE 07112019)
     Route: 065
  5. OMEPRAZOL                          /00661201/ [Concomitant]
     Active Substance: OMEPRAZOLE
     Dosage: 20 MG, DAILY (20 MG, 1-0-0-0)
  6. METAMIZOLE [Concomitant]
     Active Substance: METAMIZOLE
     Dosage: 500 MG, DAILY (500 MG, 30-30-30-30, TROPFEN)
  7. FELODIPIN [Concomitant]
     Active Substance: FELODIPINE
     Dosage: 5 MG, DAILY  (5 MG, 1-0-0-0, RETARD-TABLETTEN)
  8. ENOXAPARIN [Concomitant]
     Active Substance: ENOXAPARIN
     Dosage: 40 MG, DAILY (40 MG, 0-0-1-0)

REACTIONS (4)
  - Vomiting [Unknown]
  - Bone pain [Unknown]
  - Product prescribing error [Unknown]
  - Nausea [Unknown]
